FAERS Safety Report 25668172 (Version 2)
Quarter: 2025Q4

REPORT INFORMATION
  Report Type: Spontaneous
  Country: US (occurrence: US)
  Receive Date: 20250812
  Receipt Date: 20251010
  Transmission Date: 20260119
  Serious: No
  Sender: ASTELLAS
  Company Number: US-ASTELLAS-2025-AER-043089

PATIENT
  Age: 66 Year
  Sex: Female

DRUGS (3)
  1. VEOZAH [Suspect]
     Active Substance: FEZOLINETANT
     Indication: Menopausal symptoms
     Dosage: 1 TABLET
     Route: 048
     Dates: start: 20231017
  2. VEOZAH [Suspect]
     Active Substance: FEZOLINETANT
     Dosage: 2 TABLETS
     Route: 048
  3. VEOZAH [Suspect]
     Active Substance: FEZOLINETANT
     Dosage: 1 TABLET
     Route: 048
     Dates: end: 20250626

REACTIONS (2)
  - Pruritus [Not Recovered/Not Resolved]
  - Intentional overdose [Unknown]

NARRATIVE: CASE EVENT DATE: 20250127
